FAERS Safety Report 4968376-4 (Version None)
Quarter: 2006Q2

REPORT INFORMATION
  Report Type: 
  Country: None (occurrence: None)
  Receive Date: 20060410
  Receipt Date: 20060208
  Transmission Date: 20061013
  Serious: Yes (Death, Other)
  Sender: FDA-Public Use
  Company Number: TR-NOVOPROD-250768

PATIENT
  Age: 31 Year
  Sex: Female
  Weight: 75 kg

DRUGS (16)
  1. NOVOSEVEN [Suspect]
     Indication: TRAUMATIC HAEMORRHAGE
     Dosage: 2 X 6 MG BOLUS
     Route: 042
     Dates: start: 20060204, end: 20060204
  2. AMINOGLYCOSIDE ANTIBACTERIALS [Concomitant]
     Indication: CANDIDIASIS
     Dosage: 1.5 G, QD
     Dates: start: 20060126
  3. IMIPENEM [Concomitant]
     Dosage: 2 G, QD
     Dates: start: 20060126
  4. RED BLOOD CELLS [Concomitant]
     Dosage: 1 U, QD
     Dates: start: 20060130
  5. TRANEXAMIC ACID [Concomitant]
     Dosage: 1 AMPUL OF 250 MG
     Dates: start: 20060202
  6. FRESH FROZEN PLASMA [Concomitant]
     Dosage: 1 U, SINGLE
     Dates: start: 20060130
  7. FRESH FROZEN PLASMA [Concomitant]
     Dosage: 3 U, SINGLE
     Dates: start: 20060202
  8. FRESH FROZEN PLASMA [Concomitant]
     Dosage: 6 U, SINGLE
     Dates: start: 20060203
  9. FRESH FROZEN PLASMA [Concomitant]
     Dosage: 8 U, SINGLE
     Dates: start: 20060204
  10. PLATELETS [Concomitant]
     Dosage: 2 U, SINGLE
     Dates: start: 20060202
  11. BLOOD, WHOLE [Concomitant]
     Dosage: 2 U, SINGLE
     Dates: start: 20060202
  12. BLOOD, WHOLE [Concomitant]
     Dosage: 2 U, SINGLE
     Dates: start: 20060203
  13. BLOOD, WHOLE [Concomitant]
     Dosage: 1 U, SINGLE
     Dates: start: 20060204
  14. VITAMIN K [Concomitant]
     Dosage: 2 AMPULES
     Dates: start: 20060202
  15. VITAMIN K [Concomitant]
     Dosage: UNKNOWN
     Dates: start: 20060204
  16. PROPOFOL [Concomitant]
     Indication: CONVULSION

REACTIONS (6)
  - CARDIAC ARREST [None]
  - CARDIO-RESPIRATORY ARREST [None]
  - CONVULSION [None]
  - MULTI-ORGAN FAILURE [None]
  - PHARMACEUTICAL PRODUCT COMPLAINT [None]
  - SEPSIS [None]
